FAERS Safety Report 23996716 (Version 1)
Quarter: 2024Q2

REPORT INFORMATION
  Report Type: Spontaneous
  Country: US (occurrence: US)
  Receive Date: 20240620
  Receipt Date: 20240620
  Transmission Date: 20240716
  Serious: Yes (Hospitalization, Other)
  Sender: FDA-Public Use
  Company Number: US-BoehringerIngelheim-2024-BI-035155

PATIENT
  Sex: Male

DRUGS (5)
  1. JARDIANCE [Suspect]
     Active Substance: EMPAGLIFLOZIN
     Indication: Diabetes mellitus
  2. SYNJARDY [Suspect]
     Active Substance: EMPAGLIFLOZIN\METFORMIN HYDROCHLORIDE
     Indication: Product used for unknown indication
     Dosage: UNKNOWN
  3. BASAGLAR [Suspect]
     Active Substance: INSULIN GLARGINE
     Indication: Diabetes mellitus
     Dosage: PEN, DISPOSABLE U80/100U/ML  PRE-FILLED PEN KWIKPEN
     Route: 058
  4. METFORMIN [Suspect]
     Active Substance: METFORMIN HYDROCHLORIDE
     Indication: Product used for unknown indication
  5. INSULIN GLARGINE 80 [Concomitant]
     Indication: Product used for unknown indication

REACTIONS (8)
  - Hepatobiliary procedural complication [Recovering/Resolving]
  - Atrial fibrillation [Recovering/Resolving]
  - Hepatic cirrhosis [Unknown]
  - Fatigue [Recovering/Resolving]
  - Post-acute COVID-19 syndrome [Recovering/Resolving]
  - Mental impairment [Unknown]
  - Gastrointestinal disorder [Recovering/Resolving]
  - COVID-19 [Recovering/Resolving]

NARRATIVE: CASE EVENT DATE: 20240610
